FAERS Safety Report 20645323 (Version 1)
Quarter: 2022Q1

REPORT INFORMATION
  Report Type: Spontaneous
  Country: US (occurrence: US)
  Receive Date: 20220328
  Receipt Date: 20220328
  Transmission Date: 20220423
  Serious: Yes (Hospitalization, Other)
  Sender: FDA-Public Use
  Company Number: US-TEVA-2021-US-1940397

PATIENT
  Age: 63 Year
  Sex: Female
  Weight: 75.1 kg

DRUGS (15)
  1. RANITIDINE [Suspect]
     Active Substance: RANITIDINE
     Route: 065
     Dates: start: 2014, end: 2020
  2. ZANTAC [Suspect]
     Active Substance: RANITIDINE HYDROCHLORIDE
     Route: 065
     Dates: start: 2014, end: 2020
  3. RANITIDINE [Suspect]
     Active Substance: RANITIDINE
     Route: 065
     Dates: start: 2014, end: 2020
  4. METFORMIN [Concomitant]
     Active Substance: METFORMIN HYDROCHLORIDE
     Indication: Type 2 diabetes mellitus
     Dosage: 1000 MILLIGRAM DAILY;
     Route: 048
  5. LIPITOR [Concomitant]
     Active Substance: ATORVASTATIN CALCIUM
     Indication: Hyperlipidaemia
     Dosage: 80 MILLIGRAM DAILY;
     Route: 048
  6. KEPPRA [Concomitant]
     Active Substance: LEVETIRACETAM
     Indication: Seizure
     Dosage: 1000 MILLIGRAM DAILY;
     Route: 048
  7. HYDROCHLOROTHIAZIDE\TELMISARTAN [Concomitant]
     Active Substance: HYDROCHLOROTHIAZIDE\TELMISARTAN
     Indication: Hypertension
     Dosage: 1 DOSAGE FORMS DAILY; HYDROCHLOROTHIAZIDE 12.5 MG/ TELMISARTAN 40 MG
     Route: 048
  8. NORVASC [Concomitant]
     Active Substance: AMLODIPINE BESYLATE
     Indication: Hypertension
     Dosage: 5 MILLIGRAM DAILY;
     Route: 048
  9. VICTOZA [Concomitant]
     Active Substance: LIRAGLUTIDE
     Indication: Type 2 diabetes mellitus
     Dosage: 0.6 MG/0.1 ML (18 MG/3 ML)
     Route: 058
  10. COLACE [Concomitant]
     Active Substance: DOCUSATE SODIUM
     Dosage: 300 MILLIGRAM DAILY;
     Route: 048
  11. One a day womens formula [Concomitant]
     Route: 048
  12. Hair Skin and Nails [Concomitant]
     Route: 048
  13. AVAPRO [Concomitant]
     Active Substance: IRBESARTAN
     Dosage: 150 MILLIGRAM DAILY;
     Route: 048
     Dates: start: 201312
  14. ECOTRIN [Concomitant]
     Active Substance: ASPIRIN
     Indication: Anticoagulant therapy
     Dosage: 81 MILLIGRAM DAILY;
     Route: 048
     Dates: start: 201312
  15. LOVENOX [Concomitant]
     Active Substance: ENOXAPARIN SODIUM
     Dosage: 40 MILLIGRAM DAILY;
     Route: 058
     Dates: start: 201312

REACTIONS (11)
  - Renal mass [Unknown]
  - Renal cell carcinoma [Unknown]
  - Malignant neoplasm of renal pelvis [Unknown]
  - Uterine mass [Unknown]
  - Thyroid mass [Unknown]
  - Bladder cancer [Unknown]
  - Flank pain [Unknown]
  - Dysuria [Unknown]
  - Haematuria [Unknown]
  - Pollakiuria [Unknown]
  - Micturition urgency [Unknown]

NARRATIVE: CASE EVENT DATE: 20181001
